FAERS Safety Report 4572732-6 (Version None)
Quarter: 2005Q1

REPORT INFORMATION
  Report Type: 
  Country: None (occurrence: None)
  Receive Date: 20050208
  Receipt Date: 20050121
  Transmission Date: 20050727
  Serious: Yes (Hospitalization)
  Sender: FDA-Public Use
  Company Number: NL-SOLVAY-00305000183

PATIENT
  Sex: Male

DRUGS (2)
  1. FOOD ADDITIVE [Concomitant]
     Indication: ILL-DEFINED DISORDER
     Dosage: DAILY DOSE: 3 DOSAGE FORM
     Route: 065
  2. FEVARIN [Suspect]
     Indication: ANXIETY
     Dosage: DAILY DOSE: 150 MILLIGRAM(S)
     Route: 065
     Dates: start: 20041223, end: 20050111

REACTIONS (3)
  - CONDITION AGGRAVATED [None]
  - DERMATITIS EXFOLIATIVE [None]
  - PSORIASIS [None]
